FAERS Safety Report 4624768-4 (Version None)
Quarter: 2005Q1

REPORT INFORMATION
  Report Type: 
  Country: None (occurrence: None)
  Receive Date: 20050107
  Receipt Date: 20041007
  Transmission Date: 20050727
  Serious: No
  Sender: FDA-Public Use
  Company Number: 230139M04USA

PATIENT
  Age: 59 Year
  Sex: Female
  Weight: 65.7716 kg

DRUGS (6)
  1. REBIF [Suspect]
     Indication: MULTIPLE SCLEROSIS
     Dosage: 44 MCG, 3 IN 1 WEEKS, NOT
     Dates: start: 20040401
  2. CELEXA [Concomitant]
  3. MONOPRIL [Concomitant]
  4. TRAZODONE HCL [Concomitant]
  5. BACLOFEN [Concomitant]
  6. KLONOPIN [Concomitant]

REACTIONS (2)
  - DERMATITIS BULLOUS [None]
  - PEMPHIGOID [None]
